FAERS Safety Report 8507831-7 (Version None)
Quarter: 2012Q3

REPORT INFORMATION
  Report Type: 
  Country: None (occurrence: None)
  Receive Date: 20120709
  Receipt Date: 20120709
  Transmission Date: 20120928
  Serious: Yes (Hospitalization)
  Sender: FDA-Public Use
  Company Number: None

PATIENT
  Age: 46 Year
  Sex: Female
  Weight: 74.8435 kg

DRUGS (2)
  1. LOVAZA [Suspect]
     Indication: BLOOD CHOLESTEROL INCREASED
     Dosage: NEW-06/26/2012 - TAKE 2 CAPS, TWICE DAILY, PO
     Route: 048
     Dates: end: 20120626
  2. LOVAZA [Suspect]
     Indication: BLOOD CHOLESTEROL INCREASED
     Dosage: TAKE 4 CAPS - THEN (07/08/2010), ONCE A DAY, PO
     Route: 048
     Dates: start: 20100708, end: 20100712

REACTIONS (7)
  - ARTHROPOD BITE [None]
  - STAPHYLOCOCCAL INFECTION [None]
  - FATIGUE [None]
  - NAUSEA [None]
  - HEPATIC STEATOSIS [None]
  - VOMITING [None]
  - GAIT DISTURBANCE [None]
